FAERS Safety Report 6334833-1 (Version None)
Quarter: 2009Q3

REPORT INFORMATION
  Report Type: 
  Country: None (occurrence: None)
  Receive Date: 20090826
  Receipt Date: 20090813
  Transmission Date: 20100115
  Serious: Yes (Hospitalization, Other)
  Sender: FDA-Public Use
  Company Number: 230514K09BRA

PATIENT
  Age: 23 Year
  Sex: Female

DRUGS (3)
  1. REBIF [Suspect]
     Indication: MULTIPLE SCLEROSIS
     Dosage: 22 MCG, 2 IN 1 WEEKS
  2. PARACETAMOL (PARACETAMOL) [Concomitant]
  3. DIPYRONE (METAMIZOLE SODIUM) [Concomitant]

REACTIONS (3)
  - BLINDNESS UNILATERAL [None]
  - CENTRAL NERVOUS SYSTEM LESION [None]
  - WEIGHT DECREASED [None]
